FAERS Safety Report 12277538 (Version 1)
Quarter: 2016Q2

REPORT INFORMATION
  Report Type: Spontaneous
  Country: US (occurrence: US)
  Receive Date: 20160418
  Receipt Date: 20160418
  Transmission Date: 20160815
  Serious: No
  Sender: FDA-Public Use
  Company Number: US-BAYER-2016-068878

PATIENT
  Age: 63 Year
  Sex: Male
  Weight: 81.18 kg

DRUGS (3)
  1. CLARITIN-D 24 HOUR [Suspect]
     Active Substance: LORATADINE\PSEUDOEPHEDRINE SULFATE
     Indication: SINUS CONGESTION
  2. CLARITIN-D 24 HOUR [Suspect]
     Active Substance: LORATADINE\PSEUDOEPHEDRINE SULFATE
     Indication: RESPIRATORY TRACT CONGESTION
  3. CLARITIN-D 24 HOUR [Suspect]
     Active Substance: LORATADINE\PSEUDOEPHEDRINE SULFATE
     Indication: RHINORRHOEA
     Dosage: 1 DF, QD
     Route: 048
     Dates: start: 20160324, end: 20160331

REACTIONS (3)
  - Swelling face [None]
  - Drug ineffective [None]
  - Nasal oedema [None]

NARRATIVE: CASE EVENT DATE: 20160324
